FAERS Safety Report 20540296 (Version 2)
Quarter: 2024Q2

REPORT INFORMATION
  Report Type: Other
  Country: US (occurrence: None)
  Receive Date: 20220302
  Receipt Date: 20240611
  Transmission Date: 20240716
  Serious: Yes (Other)
  Sender: FDA-Public Use
  Company Number: US-ROCHE-3035350

PATIENT
  Age: 80 Year
  Sex: Female
  Weight: 47.216 kg

DRUGS (8)
  1. XOLAIR [Suspect]
     Active Substance: OMALIZUMAB
     Indication: Asthma
     Dosage: ONCE A MONTH, INJECT 300MG SUBCUTANEOUSLY EVERY 4 WEEK(S)
     Route: 058
  2. XOLAIR [Suspect]
     Active Substance: OMALIZUMAB
  3. CARTIA (UNITED STATES) [Concomitant]
  4. HYDROCHLOROTHIAZIDE [Concomitant]
     Active Substance: HYDROCHLOROTHIAZIDE
  5. ADVAIR HFA [Concomitant]
     Active Substance: FLUTICASONE PROPIONATE\SALMETEROL XINAFOATE
  6. ALBUTEROL [Concomitant]
     Active Substance: ALBUTEROL
  7. MIRALAX [Concomitant]
     Active Substance: POLYETHYLENE GLYCOL 3350
  8. DICYCLOMINE [Concomitant]
     Active Substance: DICYCLOMINE HYDROCHLORIDE

REACTIONS (20)
  - Impaired gastric emptying [Unknown]
  - Hypokalaemia [Unknown]
  - Transient ischaemic attack [Unknown]
  - Atrial tachycardia [Unknown]
  - Diastolic dysfunction [Unknown]
  - Chest pain [Unknown]
  - Essential hypertension [Unknown]
  - Leukocytosis [Unknown]
  - Abdominal pain lower [Unknown]
  - Lower urinary tract symptoms [Unknown]
  - Scoliosis [Unknown]
  - Spinal osteoarthritis [Unknown]
  - Lumbar radiculopathy [Unknown]
  - Depression [Unknown]
  - Dermatitis [Unknown]
  - Conjunctivitis allergic [Unknown]
  - Senile osteoporosis [Unknown]
  - Obstructive sleep apnoea syndrome [Unknown]
  - Type IIa hyperlipidaemia [Unknown]
  - Anxiety [Unknown]
